FAERS Safety Report 13076376 (Version 1)
Quarter: 2016Q4

REPORT INFORMATION
  Report Type: Spontaneous
  Country: US (occurrence: US)
  Receive Date: 20161230
  Receipt Date: 20161230
  Transmission Date: 20170207
  Serious: Yes (Hospitalization)
  Sender: FDA-Public Use
  Company Number: None

PATIENT
  Age: 62 Year
  Sex: Female

DRUGS (16)
  1. VITAMIN D3 [Concomitant]
     Active Substance: CHOLECALCIFEROL
  2. DEXAMETHASON TAB [Concomitant]
  3. MORPHINE SUL [Concomitant]
  4. PROBIOTIC CAP [Concomitant]
  5. AMOX-POT CLA [Concomitant]
  6. OXYCODONE AND ACETAMINOPHEN [Concomitant]
     Active Substance: ACETAMINOPHEN\OXYCODONE HYDROCHLORIDE
  7. ENBREL [Suspect]
     Active Substance: ETANERCEPT
     Indication: PSORIATIC ARTHROPATHY
     Route: 058
     Dates: start: 20151002
  8. MULTI-VITAMIN TAB [Concomitant]
  9. PREVACID [Concomitant]
     Active Substance: LANSOPRAZOLE
  10. GABAPENTIN. [Concomitant]
     Active Substance: GABAPENTIN
  11. NASAL SPR 0.05% [Concomitant]
  12. CYCLOBENZAPR [Concomitant]
  13. ADVAIR DISKU AER [Concomitant]
  14. METOPROL TAR TAB [Concomitant]
  15. ALBUTEROL. [Concomitant]
     Active Substance: ALBUTEROL
  16. DEXATRIM MAX [Concomitant]

REACTIONS (2)
  - Pneumonia [None]
  - Barrett^s oesophagus [None]

NARRATIVE: CASE EVENT DATE: 201612
